FAERS Safety Report 5146322-0 (Version None)
Quarter: 2006Q4

REPORT INFORMATION
  Report Type: 
  Country: None (occurrence: None)
  Receive Date: 20061108
  Receipt Date: 20061027
  Transmission Date: 20070319
  Serious: Yes (Hospitalization)
  Sender: FDA-Public Use
  Company Number: FR-GILEAD-2006-0010555

PATIENT
  Age: 56 Year
  Sex: Male

DRUGS (8)
  1. HEPSERA [Suspect]
     Route: 048
     Dates: start: 20060929, end: 20061006
  2. CLAMOXYL [Suspect]
     Route: 048
     Dates: start: 20060929, end: 20061001
  3. TAREG [Suspect]
     Route: 048
     Dates: end: 20061005
  4. CARDENSIEL [Suspect]
     Route: 048
     Dates: end: 20061005
  5. ZEFFIX [Concomitant]
  6. CORTANCYL [Concomitant]
  7. OMEPRAZOLE [Concomitant]
  8. CACIT D3 [Concomitant]

REACTIONS (3)
  - PRURIGO [None]
  - RASH MORBILLIFORM [None]
  - TOXIC SKIN ERUPTION [None]
